FAERS Safety Report 26048303 (Version 1)
Quarter: 2025Q4

REPORT INFORMATION
  Report Type: Spontaneous
  Country: CN (occurrence: CN)
  Receive Date: 20251114
  Receipt Date: 20251114
  Transmission Date: 20260118
  Serious: Yes (Other)
  Sender: NOVO NORDISK
  Company Number: CN-NOVOPROD-1558007

PATIENT
  Age: 72 Year
  Sex: Male

DRUGS (1)
  1. OZEMPIC [Suspect]
     Active Substance: SEMAGLUTIDE
     Indication: Type 2 diabetes mellitus
     Dosage: UNK

REACTIONS (5)
  - Immunodeficiency [Recovering/Resolving]
  - Nausea [Recovering/Resolving]
  - Weight decreased [Unknown]
  - Blood glucose increased [Recovering/Resolving]
  - Drug effect less than expected [Recovering/Resolving]
